FAERS Safety Report 18020729 (Version 4)
Quarter: 2022Q1

REPORT INFORMATION
  Report Type: Spontaneous
  Country: US (occurrence: US)
  Receive Date: 20200714
  Receipt Date: 20220207
  Transmission Date: 20220423
  Serious: Yes (Other)
  Sender: FDA-Public Use
  Company Number: US-GILEAD-2020-0482670

PATIENT
  Age: 60 Year
  Sex: Male
  Weight: 79.365 kg

DRUGS (23)
  1. VIREAD [Suspect]
     Active Substance: TENOFOVIR DISOPROXIL FUMARATE
     Indication: HIV infection
     Dosage: UNK
     Route: 048
     Dates: start: 200503, end: 201812
  2. VIREAD [Suspect]
     Active Substance: TENOFOVIR DISOPROXIL FUMARATE
     Dosage: UNK
     Route: 048
     Dates: start: 2001, end: 2018
  3. VIREAD [Suspect]
     Active Substance: TENOFOVIR DISOPROXIL FUMARATE
     Dosage: UNK
     Route: 048
     Dates: start: 2002, end: 201812
  4. TRUVADA [Suspect]
     Active Substance: EMTRICITABINE\TENOFOVIR DISOPROXIL FUMARATE
     Indication: HIV infection
     Dosage: UNK
     Route: 048
     Dates: start: 2005, end: 2018
  5. TRUVADA [Suspect]
     Active Substance: EMTRICITABINE\TENOFOVIR DISOPROXIL FUMARATE
     Dosage: UNK
     Route: 048
     Dates: start: 200410, end: 201812
  6. ATRIPLA [Suspect]
     Active Substance: EFAVIRENZ\EMTRICITABINE\TENOFOVIR DISOPROXIL FUMARATE
     Indication: HIV infection
     Dosage: UNK
     Route: 065
     Dates: start: 2006
  7. ACETAMINOPHEN [Concomitant]
     Active Substance: ACETAMINOPHEN
  8. AMITRIPTYLINE [Concomitant]
     Active Substance: AMITRIPTYLINE
  9. AMOXICILLIN [Concomitant]
     Active Substance: AMOXICILLIN
  10. AMPICILLIN [Concomitant]
     Active Substance: AMPICILLIN
  11. ASPIRIN [Concomitant]
     Active Substance: ASPIRIN
  12. BACTRIM [Concomitant]
     Active Substance: SULFAMETHOXAZOLE\TRIMETHOPRIM
  13. CRESTOR [Concomitant]
     Active Substance: ROSUVASTATIN CALCIUM
  14. INDINAVIR [Concomitant]
     Active Substance: INDINAVIR
  15. LITHIUM [Concomitant]
     Active Substance: LITHIUM
  16. PREZISTA [Concomitant]
     Active Substance: DARUNAVIR ETHANOLATE
  17. RETROVIR [Concomitant]
     Active Substance: ZIDOVUDINE
  18. SUSTIVA [Concomitant]
     Active Substance: EFAVIRENZ
  19. TIVICAY [Concomitant]
     Active Substance: DOLUTEGRAVIR SODIUM
  20. VIDEX [Concomitant]
     Active Substance: DIDANOSINE
  21. VIRACEPT [Concomitant]
     Active Substance: NELFINAVIR MESYLATE
  22. ZERIT [Concomitant]
     Active Substance: STAVUDINE
  23. TYLENOL [Concomitant]
     Active Substance: ACETAMINOPHEN

REACTIONS (13)
  - Renal injury [Unknown]
  - Chronic kidney disease [Unknown]
  - Osteoporosis [Unknown]
  - Renal failure [Unknown]
  - Skeletal injury [Unknown]
  - Gait disturbance [Not Recovered/Not Resolved]
  - Mobility decreased [Not Recovered/Not Resolved]
  - General physical health deterioration [Not Recovered/Not Resolved]
  - Pain [Not Recovered/Not Resolved]
  - Emotional distress [Not Recovered/Not Resolved]
  - Anxiety [Not Recovered/Not Resolved]
  - Depression [Not Recovered/Not Resolved]
  - Blood creatinine increased [Recovered/Resolved]

NARRATIVE: CASE EVENT DATE: 20100101
